FAERS Safety Report 9552328 (Version 1)
Quarter: 2013Q2

REPORT INFORMATION
  Report Type: Spontaneous
  Country: US (occurrence: None)
  Receive Date: 20130507
  Receipt Date: 20130507
  Transmission Date: 20140414
  Serious: Yes (Hospitalization)
  Sender: FDA-Public Use
  Company Number: PHEH2012US018716

PATIENT
  Age: 57 Year
  Sex: Female

DRUGS (2)
  1. TASIGNA [Suspect]
     Indication: CHRONIC MYELOID LEUKAEMIA
     Route: 048
     Dates: start: 20120419
  2. TASIGNA [Suspect]
     Indication: BREAST CANCER
     Route: 048
     Dates: start: 20120419

REACTIONS (1)
  - Pneumonia [None]
